FAERS Safety Report 6243342-X (Version None)
Quarter: 2009Q2

REPORT INFORMATION
  Report Type: 
  Country: None (occurrence: None)
  Receive Date: 20090624
  Receipt Date: 20090617
  Transmission Date: 20091009
  Serious: Yes (Hospitalization, Disabling)
  Sender: FDA-Public Use
  Company Number: US-MERCK-0706USA00989

PATIENT
  Age: 43 Year
  Sex: Male

DRUGS (1)
  1. FOSAMAX [Suspect]
     Indication: OSTEOPOROSIS
     Route: 048
     Dates: start: 19980501

REACTIONS (14)
  - ABSCESS [None]
  - ARTHRALGIA [None]
  - GINGIVAL BLEEDING [None]
  - HYPERTENSION [None]
  - IMPAIRED HEALING [None]
  - LIMB INJURY [None]
  - ORAL INFECTION [None]
  - OSTEONECROSIS [None]
  - PARONYCHIA [None]
  - RESORPTION BONE INCREASED [None]
  - RHEUMATOID ARTHRITIS [None]
  - SENSATION OF HEAVINESS [None]
  - TRAUMATIC FRACTURE [None]
  - TREATMENT NONCOMPLIANCE [None]
